FAERS Safety Report 6818544-1 (Version None)
Quarter: 2010Q2

REPORT INFORMATION
  Report Type: 
  Country: None (occurrence: None)
  Receive Date: 20100630
  Receipt Date: 20100616
  Transmission Date: 20101027
  Serious: Yes (Other)
  Sender: FDA-Public Use
  Company Number: AUR-APL-2010-01558

PATIENT
  Age: 24 Year
  Sex: Male

DRUGS (6)
  1. CIPROFLOXACIN [Suspect]
     Indication: LYMPH NODE TUBERCULOSIS
  2. ETHAMBUTOL HYDROCHLORIDE [Suspect]
     Indication: LYMPH NODE TUBERCULOSIS
  3. ISONIAZID [Suspect]
     Indication: LYMPH NODE TUBERCULOSIS
  4. PYRAZINAMIDE [Suspect]
     Indication: LYMPH NODE TUBERCULOSIS
  5. RIFATER [Suspect]
     Indication: LYMPH NODE TUBERCULOSIS
  6. PREDNISOLONE [Suspect]
     Indication: LYMPH NODE TUBERCULOSIS

REACTIONS (8)
  - COLOUR BLINDNESS [None]
  - HODGKIN'S DISEASE [None]
  - HYPERHIDROSIS [None]
  - LIVER FUNCTION TEST ABNORMAL [None]
  - NAUSEA [None]
  - NEUROPATHY PERIPHERAL [None]
  - PYREXIA [None]
  - SPLENOMEGALY [None]
